FAERS Safety Report 9516398 (Version 1)
Quarter: 2013Q1

REPORT INFORMATION
  Report Type: Spontaneous
  Country: US (occurrence: None)
  Receive Date: 20130305
  Receipt Date: 20130305
  Transmission Date: 20140127
  Serious: Yes (Hospitalization)
  Sender: FDA-Public Use
  Company Number: 163-21880-12113783

PATIENT
  Age: 80 Year
  Sex: Male

DRUGS (7)
  1. REVLIMID [Suspect]
     Indication: PLASMA CELL MYELOMA
     Dosage: 5 MG, 1 IN 1 D, PO
     Route: 048
     Dates: start: 20121110, end: 20121112
  2. ACTONEL [Concomitant]
  3. XALATAN (LATANOPROST) (EYE DROPS) [Concomitant]
  4. ACULAR (KETOROLAC TROMETHAMINE0 (EYE DROPS) [Concomitant]
  5. TIMOLOL (TIMOLOL) (EYE DROPS) [Concomitant]
  6. GABAPENTIN (GABAPENTIN) (UNKNOWN) (GABAPENTIN) [Concomitant]
  7. TRANSFUSION (UNKNOWN) [Concomitant]

REACTIONS (3)
  - Confusional state [None]
  - Asthenia [None]
  - Full blood count decreased [None]
